FAERS Safety Report 12083393 (Version 1)
Quarter: 2016Q1

REPORT INFORMATION
  Report Type: Spontaneous
  Country: US (occurrence: None)
  Receive Date: 20160216
  Receipt Date: 20160216
  Transmission Date: 20160526
  Serious: Yes (Disabling)
  Sender: FDA-Public Use
  Company Number: None

PATIENT
  Age: 54 Year
  Sex: Female
  Weight: 68.04 kg

DRUGS (5)
  1. METRONIDAZOLE FACIAL CREAM [Concomitant]
  2. LACTAID [Concomitant]
     Active Substance: LACTASE
  3. CLINDAMYCIN PHOSPHATE. [Concomitant]
     Active Substance: CLINDAMYCIN PHOSPHATE
  4. ARESTIN [Suspect]
     Active Substance: MINOCYCLINE HYDROCHLORIDE
     Indication: PERIODONTAL DISEASE
     Dosage: ONE TIME ONLY APPLIED TO A SURFACE, USUALLY THE SKIN
     Route: 061
     Dates: start: 20160209, end: 20160209
  5. PURNAIL ANTIFUNGAL [Concomitant]

REACTIONS (1)
  - Vertigo [None]

NARRATIVE: CASE EVENT DATE: 20160209
